FAERS Safety Report 17510691 (Version 1)
Quarter: 2020Q1

REPORT INFORMATION
  Report Type: Spontaneous
  Country: DK (occurrence: DK)
  Receive Date: 20200306
  Receipt Date: 20200306
  Transmission Date: 20200409
  Serious: Yes (Death, Life-Threatening)
  Sender: FDA-Public Use
  Company Number: DK-009507513-2003DNK000900

PATIENT
  Age: 56 Year
  Sex: Male

DRUGS (1)
  1. KEYTRUDA [Suspect]
     Active Substance: PEMBROLIZUMAB
     Indication: BLADDER CANCER
     Dosage: STRENGTH: UNKNOWN
     Route: 042
     Dates: start: 20190919, end: 20200109

REACTIONS (3)
  - Myocarditis [Fatal]
  - Pneumonitis [Fatal]
  - Hypotension [Fatal]

NARRATIVE: CASE EVENT DATE: 20200129
